FAERS Safety Report 4611821-4 (Version None)
Quarter: 2005Q1

REPORT INFORMATION
  Report Type: 
  Country: None (occurrence: None)
  Receive Date: 20050317
  Receipt Date: 20041116
  Transmission Date: 20050727
  Serious: Yes (Hospitalization, Other)
  Sender: FDA-Public Use
  Company Number: FR-ABBOTT-04P-056-0280859-00

PATIENT
  Age: 40 Year
  Sex: Male
  Weight: 88 kg

DRUGS (13)
  1. HUMIRA [Suspect]
     Indication: RHEUMATOID ARTHRITIS
     Route: 058
     Dates: start: 20031215, end: 20040802
  2. HUMIRA [Suspect]
  3. BETAMETHASONE [Concomitant]
     Indication: POLYARTHRITIS
     Route: 048
     Dates: start: 20030528, end: 20040801
  4. BETAMETHASONE [Concomitant]
     Dates: start: 20040101
  5. BETAMETHASONE [Concomitant]
  6. SULFASALAZINE [Concomitant]
     Indication: POLYARTHRITIS
     Route: 048
     Dates: start: 20030530, end: 20040830
  7. PANTOPRAZOLE [Concomitant]
     Indication: DRUG USE FOR UNKNOWN INDICATION
     Route: 048
  8. ROFECOXIB [Concomitant]
     Indication: POLYARTHRITIS
     Route: 048
     Dates: end: 20040801
  9. ROFECOXIB [Concomitant]
     Dates: start: 20040101
  10. FUROSEMIDE [Concomitant]
     Indication: DRUG USE FOR UNKNOWN INDICATION
     Route: 048
  11. COLCHICINE [Concomitant]
     Indication: DRUG USE FOR UNKNOWN INDICATION
  12. SULFASALAZINE [Concomitant]
     Indication: DRUG USE FOR UNKNOWN INDICATION
  13. INSULIN [Concomitant]
     Indication: DIABETES MELLITUS INSULIN-DEPENDENT

REACTIONS (12)
  - ARTHRALGIA [None]
  - GENERAL PHYSICAL HEALTH DETERIORATION [None]
  - HEART RATE INCREASED [None]
  - HYPERTHERMIA [None]
  - HYPOXIA [None]
  - INFLUENZA [None]
  - LUNG DISORDER [None]
  - MYALGIA [None]
  - PNEUMONIA LEGIONELLA [None]
  - RESPIRATORY FAILURE [None]
  - SEPSIS [None]
  - VOMITING [None]
